FAERS Safety Report 25699923 (Version 2)
Quarter: 2025Q3

REPORT INFORMATION
  Report Type: Spontaneous
  Country: CN (occurrence: CN)
  Receive Date: 20250819
  Receipt Date: 20250928
  Transmission Date: 20251020
  Serious: Yes (Death, Life-Threatening, Hospitalization)
  Sender: BEIGENE
  Company Number: CN-BEIGENE-BGN-2025-013345

PATIENT
  Age: 55 Year

DRUGS (5)
  1. TISLELIZUMAB [Suspect]
     Active Substance: TISLELIZUMAB
     Indication: Adenocarcinoma of the cervix
  2. TISLELIZUMAB [Suspect]
     Active Substance: TISLELIZUMAB
  3. TISLELIZUMAB [Suspect]
     Active Substance: TISLELIZUMAB
  4. TISLELIZUMAB [Suspect]
     Active Substance: TISLELIZUMAB
  5. CISPLATIN [Suspect]
     Active Substance: CISPLATIN
     Indication: Adenocarcinoma of the cervix

REACTIONS (3)
  - Acute hepatic failure [Fatal]
  - Immune-mediated hepatitis [Unknown]
  - Hepatic encephalopathy [Unknown]
